FAERS Safety Report 15400805 (Version 2)
Quarter: 2018Q4

REPORT INFORMATION
  Report Type: Spontaneous
  Country: CO (occurrence: CO)
  Receive Date: 20180919
  Receipt Date: 20181008
  Transmission Date: 20190204
  Serious: Yes (Death)
  Sender: FDA-Public Use
  Company Number: CO-ROCHE-2184314

PATIENT
  Age: 64 Year
  Sex: Male
  Weight: 58 kg

DRUGS (4)
  1. DERMOVATE [Concomitant]
     Active Substance: CLOBETASOL
     Indication: RASH
  2. XELODA [Suspect]
     Active Substance: CAPECITABINE
     Dosage: DAYS 1 TO 14, EVERY 21 DAYS X 8 CYCLES.
     Route: 048
  3. XELODA [Suspect]
     Active Substance: CAPECITABINE
     Indication: COLON CANCER
     Dosage: DAYS 1 TO 14, EVERY 21 DAYS X 8 CYCLES.
     Route: 048
     Dates: start: 20180816, end: 20180823
  4. LOSARTAN. [Concomitant]
     Active Substance: LOSARTAN
     Route: 065

REACTIONS (26)
  - Asthenia [Fatal]
  - Coagulopathy [Fatal]
  - Acute kidney injury [Fatal]
  - Polyuria [Fatal]
  - Multiple organ dysfunction syndrome [Fatal]
  - Generalised oedema [Fatal]
  - Pyrexia [Fatal]
  - Peripheral ischaemia [Fatal]
  - Oedema [Fatal]
  - Skin lesion [Fatal]
  - Poor peripheral circulation [Fatal]
  - Blood urea increased [Fatal]
  - Syncope [Fatal]
  - Shock [Fatal]
  - Metabolic acidosis [Fatal]
  - Leukopenia [Fatal]
  - Renal impairment [Fatal]
  - Oxygen saturation decreased [Fatal]
  - Drug intolerance [Fatal]
  - Discomfort [Fatal]
  - Diarrhoea [Fatal]
  - Thrombocytopenia [Fatal]
  - Ventricular tachycardia [Fatal]
  - Bone marrow failure [Fatal]
  - Poor peripheral circulation [Fatal]
  - Anuria [Fatal]

NARRATIVE: CASE EVENT DATE: 20180823
